FAERS Safety Report 5262223-1 (Version None)
Quarter: 2007Q1

REPORT INFORMATION
  Report Type: 
  Country: None (occurrence: None)
  Receive Date: 20070308
  Receipt Date: 20070220
  Transmission Date: 20070707
  Serious: Yes (Death, Other)
  Sender: FDA-Public Use
  Company Number: 2007S1000157

PATIENT
  Age: 52 Year
  Sex: Male

DRUGS (3)
  1. CUBICIN [Suspect]
     Dosage: Q48H
     Dates: start: 20070201, end: 20070201
  2. LIPITOR [Concomitant]
  3. CIPROFLOXACIN [Concomitant]

REACTIONS (4)
  - BLOOD CULTURE POSITIVE [None]
  - CARDIAC ARREST [None]
  - HEPATIC ENZYME INCREASED [None]
  - STAPHYLOCOCCAL INFECTION [None]
